FAERS Safety Report 17811711 (Version 1)
Quarter: 2020Q2

REPORT INFORMATION
  Report Type: Spontaneous
  Country: US (occurrence: US)
  Receive Date: 20200521
  Receipt Date: 20200521
  Transmission Date: 20200714
  Serious: Yes (Other)
  Sender: FDA-Public Use
  Company Number: None

PATIENT
  Age: 39 Year
  Sex: Female
  Weight: 56.25 kg

DRUGS (1)
  1. ABILIFY [Suspect]
     Active Substance: ARIPIPRAZOLE
     Indication: SEDATION

REACTIONS (9)
  - Thinking abnormal [None]
  - Victim of crime [None]
  - Feeling abnormal [None]
  - Mental impairment [None]
  - Victim of sexual abuse [None]
  - Depression [None]
  - Memory impairment [None]
  - Lactation disorder [None]
  - Victim of abuse [None]

NARRATIVE: CASE EVENT DATE: 20200520
